FAERS Safety Report 7875642 (Version 2)
Quarter: 2013Q4

REPORT INFORMATION
  Report Type: Report from Study
  Country: US (occurrence: US)
  Receive Date: 20110329
  Receipt Date: 20131115
  Transmission Date: 20140711
  Serious: Yes (Hospitalization, Other)
  Sender: FDA-Public Use
  Company Number: US-ROCHE-766452

PATIENT
  Sex: 0

DRUGS (5)
  1. BEVACIZUMAB [Suspect]
     Indication: COLORECTAL CANCER
     Dosage: ON DAYS 15 AND 29 ONLY
     Route: 042
  2. FOLINIC ACID [Suspect]
     Indication: COLORECTAL CANCER
     Route: 065
  3. IRINOTECAN [Suspect]
     Indication: COLORECTAL CANCER
     Route: 065
  4. OXALIPLATIN [Suspect]
     Indication: COLORECTAL CANCER
     Route: 065
  5. FLUOROURACIL [Suspect]
     Indication: COLORECTAL CANCER
     Route: 065

REACTIONS (13)
  - Diarrhoea [Unknown]
  - Abdominal pain [Unknown]
  - Infection [Unknown]
  - Thrombosis [Unknown]
  - Portal vein thrombosis [Unknown]
  - Catheter site haemorrhage [Unknown]
  - Ulcer [Unknown]
  - Nasal septum perforation [Unknown]
  - Mucosal inflammation [Unknown]
  - Full blood count decreased [Unknown]
  - Malaise [Unknown]
  - Toxicity to various agents [Unknown]
  - Neutropenia [Unknown]
